FAERS Safety Report 10214597 (Version 2)
Quarter: 2014Q3

REPORT INFORMATION
  Report Type: Spontaneous
  Country: JP (occurrence: JP)
  Receive Date: 20140603
  Receipt Date: 20140716
  Transmission Date: 20150326
  Serious: Yes (Hospitalization)
  Sender: FDA-Public Use
  Company Number: JP-GLAXOSMITHKLINE-B0998504A

PATIENT
  Age: 62 Year
  Sex: Female

DRUGS (3)
  1. XELODA [Suspect]
     Active Substance: CAPECITABINE
     Indication: METASTASES TO CENTRAL NERVOUS SYSTEM
     Dosage: 2100MG TWICE PER DAY
     Route: 048
     Dates: start: 20140129
  2. TYKERB [Suspect]
     Active Substance: LAPATINIB DITOSYLATE
     Indication: METASTASES TO CENTRAL NERVOUS SYSTEM
     Dosage: 1250MG PER DAY
     Route: 048
     Dates: start: 20140129, end: 20140411
  3. XELODA [Suspect]
     Active Substance: CAPECITABINE
     Indication: METASTASES TO CENTRAL NERVOUS SYSTEM
     Dosage: 1500MG TWICE PER DAY
     Route: 048
     Dates: end: 20140411

REACTIONS (4)
  - Fatigue [Not Recovered/Not Resolved]
  - Hepatic steatosis [Unknown]
  - Aspartate aminotransferase increased [Not Recovered/Not Resolved]
  - Hepatic function abnormal [Recovering/Resolving]

NARRATIVE: CASE EVENT DATE: 20140411
